FAERS Safety Report 18107267 (Version 1)
Quarter: 2020Q3

REPORT INFORMATION
  Report Type: Spontaneous
  Country: IN (occurrence: IN)
  Receive Date: 20200804
  Receipt Date: 20200804
  Transmission Date: 20201103
  Serious: No
  Sender: FDA-Public Use
  Company Number: None

PATIENT
  Age: 24 Year
  Sex: Female
  Weight: 40 kg

DRUGS (2)
  1. AKT?4 [Suspect]
     Active Substance: ETHAMBUTOL HYDROCHLORIDE\ISONIAZID\PYRAZINAMIDE\RIFAMYCIN
     Indication: TUBERCULOSIS GASTROINTESTINAL
     Route: 048
     Dates: start: 20200616
  2. BENADON [Concomitant]
     Active Substance: PYRIDOXINE HYDROCHLORIDE

REACTIONS (2)
  - Headache [None]
  - Arthralgia [None]

NARRATIVE: CASE EVENT DATE: 20200712
